FAERS Safety Report 24427665 (Version 1)
Quarter: 2024Q4

REPORT INFORMATION
  Report Type: Spontaneous
  Country: US (occurrence: US)
  Receive Date: 20241011
  Receipt Date: 20241011
  Transmission Date: 20250115
  Serious: Yes (Other)
  Sender: VERTEX
  Company Number: US-VERTEX PHARMACEUTICALS-2024-015797

PATIENT
  Age: 25 Year
  Sex: Male

DRUGS (2)
  1. TRIKAFTA [Suspect]
     Active Substance: ELEXACAFTOR\IVACAFTOR\TEZACAFTOR
     Indication: Cystic fibrosis
     Dosage: UNK
     Route: 048
  2. TRIKAFTA [Suspect]
     Active Substance: ELEXACAFTOR\IVACAFTOR\TEZACAFTOR
     Dosage: MODIFYING DOSAGE
     Route: 048

REACTIONS (9)
  - Suicide attempt [Unknown]
  - Apathy [Unknown]
  - Social anxiety disorder [Unknown]
  - Attention deficit hyperactivity disorder [Unknown]
  - Disturbance in attention [Unknown]
  - Brain fog [Unknown]
  - Cognitive disorder [Unknown]
  - Depression [Unknown]
  - Memory impairment [Unknown]
